FAERS Safety Report 12701237 (Version 8)
Quarter: 2016Q4

REPORT INFORMATION
  Report Type: Report from Study
  Country: CA (occurrence: CA)
  Receive Date: 20160831
  Receipt Date: 20161222
  Transmission Date: 20170207
  Serious: Yes (Other)
  Sender: FDA-Public Use
  Company Number: CA-AMGEN-CANCT2016111855

PATIENT
  Age: 40 Year
  Sex: Female
  Weight: 69.8 kg

DRUGS (25)
  1. REPLENS [Concomitant]
     Active Substance: CARBOMER 934\GLYCERIN\METHYLPARABEN\PROPYLPARABEN\SODIUM HYDROXIDE
     Dosage: 1 UNK, UNK
     Route: 050
     Dates: start: 20150201
  2. DOCUSATE SODIUM. [Concomitant]
     Active Substance: DOCUSATE SODIUM
     Dosage: 1 UNK, UNK
     Route: 048
     Dates: start: 2008
  3. TRAZODONE [Concomitant]
     Active Substance: TRAZODONE HYDROCHLORIDE
     Dosage: 75-100 MG, UNK
     Route: 048
     Dates: start: 20130611
  4. SERTRALINE [Concomitant]
     Active Substance: SERTRALINE HYDROCHLORIDE
     Dosage: 250-300 MG, UNK
     Route: 048
     Dates: start: 20130611
  5. SERTRALINE [Concomitant]
     Active Substance: SERTRALINE HYDROCHLORIDE
     Route: 048
     Dates: start: 20151019
  6. ROBAXISAL [Concomitant]
     Active Substance: ASPIRIN\METHOCARBAMOL
     Dosage: 2 UNK, UNK
     Route: 048
     Dates: start: 20150329
  7. RALIVIA [Concomitant]
     Active Substance: TRAMADOL HYDROCHLORIDE
     Dosage: 300 MG, UNK
     Route: 048
     Dates: start: 20150609
  8. ADVIL [Concomitant]
     Active Substance: IBUPROFEN
     Dosage: 400 MG, UNK
     Route: 048
     Dates: start: 20150627
  9. SYSTANE (HYPROMELLOSE 2910 (4000 MPA.S)) [Concomitant]
     Active Substance: HYPROMELLOSE 2910 (4000 MPA.S)
     Dosage: 4 GTT, UNK
     Route: 047
     Dates: start: 2013
  10. CALCIUM [Concomitant]
     Active Substance: CALCIUM
     Dosage: 333 MG, UNK
     Route: 048
     Dates: start: 20140506
  11. GRAVOL [Concomitant]
     Active Substance: DIMENHYDRINATE
     Dosage: 50 MG, UNK
     Route: 048
     Dates: start: 20150625
  12. POLYSPORIN [Concomitant]
     Active Substance: BACITRACIN ZINC\POLYMYXIN B SULFATE
     Dosage: 1 UNK, UNK
     Route: 061
     Dates: start: 20150623, end: 20160229
  13. CORTISONE [Concomitant]
     Active Substance: CORTISONE\HYDROCORTISONE
     Dosage: 1 UNK, UNK
     Route: 061
     Dates: start: 201407, end: 20160229
  14. MELATONIN [Concomitant]
     Active Substance: MELATONIN
     Dosage: 10 MG, UNK
     Route: 048
     Dates: start: 2013
  15. DENOSUMAB [Suspect]
     Active Substance: DENOSUMAB
     Indication: BREAST CANCER
     Dosage: 120 MG, UNK
     Route: 058
     Dates: start: 20120718, end: 20150917
  16. NASONEX [Concomitant]
     Active Substance: MOMETASONE FUROATE
     Dosage: 2 UNK, UNK
     Route: 055
     Dates: start: 20120913
  17. GRAVOL GINGER [Concomitant]
     Dosage: 1 UNK, UNK
     Route: 048
     Dates: start: 201106
  18. SENOKOT [Concomitant]
     Active Substance: SENNOSIDES
     Dosage: 2 UNK, UNK
     Route: 048
     Dates: start: 20131101
  19. VITAMIN D [Concomitant]
     Active Substance: CHOLECALCIFEROL
     Dosage: 1000 IU, UNK
     Route: 048
     Dates: start: 20140506
  20. ARTIFICIAL TEARS [Concomitant]
     Active Substance: GLYCERIN\HYPROMELLOSES\POLYETHYLENE GLYCOL 400
     Dosage: 1 MG, UNK
     Route: 047
     Dates: start: 20140329
  21. MAGNESIUM [Concomitant]
     Active Substance: MAGNESIUM
     Dosage: 2 UNK, UNK
     Route: 048
     Dates: start: 20140506
  22. EXCEDRIN [Concomitant]
     Active Substance: ACETAMINOPHEN\ASPIRIN\CAFFEINE
     Dosage: 1 UNK, UNK
     Route: 048
     Dates: start: 2005, end: 20160229
  23. TYLENOL EXTRA STRENGTH [Concomitant]
     Active Substance: ACETAMINOPHEN
     Dosage: 1 UNK, UNK
     Route: 048
     Dates: start: 20150627
  24. PULMICORT TURBUHALER [Concomitant]
     Active Substance: BUDESONIDE
     Dosage: 1 UNK, UNK
     Route: 055
     Dates: start: 20120913
  25. CLONAZEPAM. [Concomitant]
     Active Substance: CLONAZEPAM
     Dosage: 0.5 MG, UNK
     Route: 048
     Dates: start: 20130206

REACTIONS (1)
  - Cerebellar ataxia [Not Recovered/Not Resolved]

NARRATIVE: CASE EVENT DATE: 20151101
